FAERS Safety Report 15787040 (Version 1)
Quarter: 2019Q1

REPORT INFORMATION
  Report Type: Spontaneous
  Country: US (occurrence: US)
  Receive Date: 20190103
  Receipt Date: 20190103
  Transmission Date: 20190417
  Serious: No
  Sender: FDA-Public Use
  Company Number: US-TEVA-2018-US-985264

PATIENT
  Sex: Female

DRUGS (3)
  1. TRI-LO-SPRINTEC [Suspect]
     Active Substance: ETHINYL ESTRADIOL\NORGESTIMATE
     Indication: MENORRHAGIA
     Dosage: FORM STRENGTH: NORGESTIMATE 0.18 AND ETHINYL ESTRADIOL 0.25
     Route: 065
     Dates: start: 2017
  2. TRI-LO-SPRINTEC [Suspect]
     Active Substance: ETHINYL ESTRADIOL\NORGESTIMATE
     Dosage: FORM STRENGTH: NORGESTIMATE 0.215 AND ETHINYL ESTRADIOL 0.035
     Route: 065
  3. TRI-LO-SPRINTEC [Suspect]
     Active Substance: ETHINYL ESTRADIOL\NORGESTIMATE
     Dosage: FORM STRENGTH: NORGESTIMATE 0.250 AND ETHINYL ESTRADIOL (NOT PROVIDED)
     Route: 065

REACTIONS (3)
  - Vaginal haemorrhage [Unknown]
  - Product use in unapproved indication [Unknown]
  - Menstruation irregular [Unknown]

NARRATIVE: CASE EVENT DATE: 2017
